FAERS Safety Report 5404179-4 (Version None)
Quarter: 2007Q3

REPORT INFORMATION
  Report Type: 
  Country: None (occurrence: None)
  Receive Date: 20070731
  Receipt Date: 20070723
  Transmission Date: 20080115
  Serious: Yes (Hospitalization)
  Sender: FDA-Public Use
  Company Number: 2007BI005715

PATIENT
  Age: 66 Year
  Sex: Female

DRUGS (10)
  1. AVONEX [Suspect]
     Indication: MULTIPLE SCLEROSIS
     Dosage: 30 UG;QW;IM
     Route: 030
     Dates: start: 19990413
  2. PREDNISONE TAB [Concomitant]
  3. ZOCOR [Concomitant]
  4. ANAPROX [Concomitant]
  5. TYLENOL (CAPLET) [Concomitant]
  6. PAXIL [Concomitant]
  7. ADVAIR DISKUS 100/50 [Concomitant]
  8. MULTI-VITAMIN [Concomitant]
  9. CALCIUM WITH VITAMIN D [Concomitant]
  10. ASPIRIN [Concomitant]

REACTIONS (1)
  - NEPHROLITHIASIS [None]
